FAERS Safety Report 6027331-6 (Version None)
Quarter: 2009Q1

REPORT INFORMATION
  Report Type: 
  Country: None (occurrence: None)
  Receive Date: 20090105
  Receipt Date: 20081229
  Transmission Date: 20090719
  Serious: Yes (Other)
  Sender: FDA-Public Use
  Company Number: B0547830A

PATIENT
  Age: 76 Year
  Sex: Female
  Weight: 41.1 kg

DRUGS (5)
  1. ZOVIRAX [Suspect]
     Indication: HERPES ZOSTER
     Dosage: 250MG PER DAY
     Route: 042
     Dates: start: 20081118, end: 20081118
  2. MEROPEN [Concomitant]
     Dosage: .5G PER DAY
     Route: 042
     Dates: start: 20081118, end: 20081124
  3. KN-1B [Concomitant]
     Route: 042
  4. ESPO [Concomitant]
  5. KIDMIN [Concomitant]
     Route: 042

REACTIONS (3)
  - CONVULSION [None]
  - LOSS OF CONSCIOUSNESS [None]
  - OVERDOSE [None]
